FAERS Safety Report 5906720-1 (Version None)
Quarter: 2008Q4

REPORT INFORMATION
  Report Type: 
  Country: None (occurrence: None)
  Receive Date: 20081002
  Receipt Date: 20080925
  Transmission Date: 20090506
  Serious: Yes (Hospitalization)
  Sender: FDA-Public Use
  Company Number: GB-ABBOTT-08P-167-0478306-00

PATIENT
  Sex: Female
  Weight: 57 kg

DRUGS (9)
  1. HUMIRA [Suspect]
     Indication: RHEUMATOID ARTHRITIS
     Route: 058
     Dates: start: 20070419
  2. DIAZEPAM [Suspect]
     Indication: DRUG USE FOR UNKNOWN INDICATION
  3. ETHANOL [Suspect]
     Indication: DRUG USE FOR UNKNOWN INDICATION
  4. KETOPROFEN [Concomitant]
     Indication: DRUG USE FOR UNKNOWN INDICATION
  5. MIRTAZAPINE [Concomitant]
     Indication: DRUG USE FOR UNKNOWN INDICATION
  6. OMEPRAZOLE SODIUM [Concomitant]
     Indication: DRUG USE FOR UNKNOWN INDICATION
  7. ACETAMINOPHEN [Concomitant]
     Indication: DRUG USE FOR UNKNOWN INDICATION
  8. VENLAFAXINE HCL [Concomitant]
     Indication: DRUG USE FOR UNKNOWN INDICATION
  9. VALPROATE SODIUM [Concomitant]
     Indication: DRUG USE FOR UNKNOWN INDICATION

REACTIONS (1)
  - INTENTIONAL OVERDOSE [None]
